FAERS Safety Report 21916850 (Version 3)
Quarter: 2025Q3

REPORT INFORMATION
  Report Type: Report from Study
  Country: US (occurrence: US)
  Receive Date: 20230126
  Receipt Date: 20250710
  Transmission Date: 20251021
  Serious: Yes (Hospitalization, Other)
  Sender: JAZZ
  Company Number: US-GW PHARMA-2023-US-001583

PATIENT
  Age: 4 Year
  Sex: Female

DRUGS (1)
  1. EPIDIOLEX [Suspect]
     Active Substance: CANNABIDIOL
     Indication: Epilepsy
     Dates: start: 202210

REACTIONS (1)
  - Pneumonia respiratory syncytial viral [Unknown]

NARRATIVE: CASE EVENT DATE: 20221120
